FAERS Safety Report 12072127 (Version 2)
Quarter: 2016Q1

REPORT INFORMATION
  Report Type: Spontaneous
  Country: US (occurrence: US)
  Receive Date: 20160212
  Receipt Date: 20160215
  Transmission Date: 20160526
  Serious: No
  Sender: FDA-Public Use
  Company Number: US-BAYER-2016-025654

PATIENT
  Age: 83 Year
  Sex: Male
  Weight: 99.77 kg

DRUGS (1)
  1. MIRALAX [Suspect]
     Active Substance: POLYETHYLENE GLYCOL 3350
     Indication: CONSTIPATION
     Dosage: 1 DF, EVERY EVENING FOR THE PAST YEAR
     Route: 048
     Dates: start: 2015

REACTIONS (3)
  - Product use issue [None]
  - Bowel movement irregularity [None]
  - Therapy cessation [None]

NARRATIVE: CASE EVENT DATE: 2015
